FAERS Safety Report 5930036-0 (Version None)
Quarter: 2008Q4

REPORT INFORMATION
  Report Type: 
  Country: None (occurrence: None)
  Receive Date: 20081024
  Receipt Date: 20081013
  Transmission Date: 20090506
  Serious: Yes (Hospitalization)
  Sender: FDA-Public Use
  Company Number: GB-PFIZER INC-2008086283

PATIENT
  Age: 61 Year
  Sex: Male

DRUGS (4)
  1. PHENYTOIN [Suspect]
     Indication: CONVULSION
     Route: 042
     Dates: start: 20080810, end: 20080831
  2. LEVETIRACETAM [Suspect]
     Indication: CONVULSION
     Route: 048
     Dates: start: 20080815
  3. AMOXICILLIN + CLAVULANATE POTASSIUM [Concomitant]
     Route: 042
     Dates: start: 20080810
  4. PANTOPRAZOLE SODIUM [Concomitant]
     Dates: start: 20080810

REACTIONS (1)
  - NEUTROPENIA [None]
